FAERS Safety Report 9298059 (Version 4)
Quarter: 2013Q4

REPORT INFORMATION
  Report Type: Report from Study
  Country: DE (occurrence: DE)
  Receive Date: 20130520
  Receipt Date: 20131210
  Transmission Date: 20140711
  Serious: Yes (Death, Life-Threatening, Other)
  Sender: FDA-Public Use
  Company Number: DE-NOVOPROD-363436

PATIENT
  Age: 16 Year
  Sex: Male
  Weight: 71.5 kg

DRUGS (1)
  1. NORDITROPIN VIAL [Suspect]
     Indication: GROWTH HORMONE DEFICIENCY
     Dosage: 2 MG, QD
     Route: 058
     Dates: start: 20030915, end: 201108

REACTIONS (1)
  - Metastases to meninges [Fatal]
